FAERS Safety Report 11473217 (Version 1)
Quarter: 2015Q3

REPORT INFORMATION
  Report Type: Spontaneous
  Country: US (occurrence: None)
  Receive Date: 20150904
  Receipt Date: 20150904
  Transmission Date: 20151125
  Serious: Yes (Other)
  Sender: FDA-Public Use
  Company Number: RAP-0148-2014

PATIENT
  Age: 13 Year
  Sex: Male
  Weight: 45.8 kg

DRUGS (1)
  1. PROCYSBI DELAYED-RELEASE [Suspect]
     Active Substance: CYSTEAMINE BITARTRATE
     Indication: CYSTINOSIS
     Dates: start: 20140224, end: 20140321

REACTIONS (6)
  - Amino acid level abnormal [None]
  - Feeling abnormal [None]
  - Product physical issue [None]
  - Underdose [None]
  - Renal failure [None]
  - Feeding tube complication [None]
